FAERS Safety Report 4912495-5 (Version None)
Quarter: 2006Q1

REPORT INFORMATION
  Report Type: 
  Country: None (occurrence: None)
  Receive Date: 20060215
  Receipt Date: 20050519
  Transmission Date: 20060701
  Serious: No
  Sender: FDA-Public Use
  Company Number: US-GLAXOSMITHKLINE-A0559354A

PATIENT
  Sex: Female

DRUGS (6)
  1. VALTREX [Suspect]
     Indication: DRUG USE FOR UNKNOWN INDICATION
     Dosage: 1G THREE TIMES PER DAY
     Route: 048
     Dates: start: 20050506
  2. LEXAPRO [Concomitant]
  3. DIAZEPAM [Concomitant]
  4. HYDROCODONE BITARTRATE [Concomitant]
  5. SYNTHROID [Concomitant]
  6. PROMETHAZINE [Concomitant]

REACTIONS (1)
  - ILL-DEFINED DISORDER [None]
